FAERS Safety Report 4844895-6 (Version None)
Quarter: 2005Q4

REPORT INFORMATION
  Report Type: 
  Country: None (occurrence: None)
  Receive Date: 20051125
  Receipt Date: 20051111
  Transmission Date: 20060501
  Serious: Yes (Death)
  Sender: FDA-Public Use
  Company Number: 2005152028

PATIENT
  Sex: Female

DRUGS (1)
  1. XALATAN [Suspect]
     Indication: GLAUCOMA
     Dosage: 1 DROP, 1 IN 1 D, OPHTHALMIC
     Route: 047
     Dates: start: 20030101, end: 20050501

REACTIONS (1)
  - NEOPLASM MALIGNANT [None]
